FAERS Safety Report 25619061 (Version 1)
Quarter: 2025Q3

REPORT INFORMATION
  Report Type: Spontaneous
  Country: EU (occurrence: EU)
  Receive Date: 20250729
  Receipt Date: 20250729
  Transmission Date: 20251020
  Serious: Yes (Other)
  Sender: MYLAN
  Company Number: EU-BRISTOL-MYERS SQUIBB COMPANY-2025-094684

PATIENT
  Age: 28 Year
  Sex: Female

DRUGS (8)
  1. FENOFIBRATE [Suspect]
     Active Substance: FENOFIBRATE
     Indication: Pinealoblastoma
     Dosage: 90 MILLIGRAM/SQ. METER, QD
  2. CELECOXIB [Suspect]
     Active Substance: CELECOXIB
     Indication: Pinealoblastoma
     Dosage: 800 MILLIGRAM, BID
  3. CYTARABINE [Suspect]
     Active Substance: CYTARABINE
     Indication: Pinealoblastoma
  4. ETOPOSIDE [Suspect]
     Active Substance: ETOPOSIDE
     Indication: Pinealoblastoma
  5. ETOPOSIDE [Suspect]
     Active Substance: ETOPOSIDE
     Dosage: 0.5 MG/D (IV THERAPY CONSISTED OF ALTERNATING ETOPOSIDE (FOR 5 CONSECUTIVE DAYS) IN WEEK 1)
  6. THALIDOMIDE [Suspect]
     Active Substance: THALIDOMIDE
     Indication: Pinealoblastoma
     Dosage: 3 MILLIGRAM/KILOGRAM, QD
  7. CYCLOPHOSPHAMIDE [Suspect]
     Active Substance: CYCLOPHOSPHAMIDE
     Indication: Pinealoblastoma
  8. BEVACIZUMAB [Suspect]
     Active Substance: BEVACIZUMAB
     Indication: Pinealoblastoma
     Dosage: 10 MILLIGRAM/KILOGRAM, Q2W

REACTIONS (4)
  - Neurotoxicity [Unknown]
  - Meningitis bacterial [Unknown]
  - Neutropenia [Unknown]
  - Off label use [Unknown]
